FAERS Safety Report 19002820 (Version 1)
Quarter: 2021Q1

REPORT INFORMATION
  Report Type: Spontaneous
  Country: GB (occurrence: GB)
  Receive Date: 20210312
  Receipt Date: 20210312
  Transmission Date: 20210420
  Serious: Yes (Other)
  Sender: FDA-Public Use
  Company Number: GB-ARBOR PHARMACEUTICALS, LLC-GB-2021ARB000258

PATIENT
  Age: 82 Year
  Sex: Male

DRUGS (4)
  1. TRIPTODUR [Suspect]
     Active Substance: TRIPTORELIN
     Indication: PRODUCT USED FOR UNKNOWN INDICATION
     Dosage: UNK
     Route: 065
  2. TRIPTODUR [Suspect]
     Active Substance: TRIPTORELIN
  3. TRIPTODUR [Suspect]
     Active Substance: TRIPTORELIN
  4. XTANDI [Suspect]
     Active Substance: ENZALUTAMIDE
     Indication: PRODUCT USED FOR UNKNOWN INDICATION
     Dosage: 160 MG, 1 D
     Route: 065

REACTIONS (6)
  - Taste disorder [Unknown]
  - Arthritis [Unknown]
  - Back pain [Unknown]
  - Malignant neoplasm progression [Unknown]
  - Osteoporosis [Unknown]
  - Goitre [Unknown]
